FAERS Safety Report 9859154 (Version 1)
Quarter: 2014Q1

REPORT INFORMATION
  Report Type: Spontaneous
  Country: US (occurrence: None)
  Receive Date: 20140129
  Receipt Date: 20140129
  Transmission Date: 20141002
  Serious: Yes (Hospitalization, Other)
  Sender: FDA-Public Use
  Company Number: US-ALKEM-000467

PATIENT
  Age: 19 Year
  Sex: Female

DRUGS (1)
  1. AMLODIPINE(AMLODIPINE) [Suspect]

REACTIONS (7)
  - Intentional overdose [None]
  - Metabolic acidosis [None]
  - Hyperglycaemia [None]
  - Hypotension [None]
  - Angioedema [None]
  - Sinus tachycardia [None]
  - Toxicity to various agents [None]
